FAERS Safety Report 10264150 (Version 5)
Quarter: 2015Q2

REPORT INFORMATION
  Report Type: Report from Study
  Country: US (occurrence: US)
  Receive Date: 20140627
  Receipt Date: 20150626
  Transmission Date: 20150821
  Serious: Yes (Death, Hospitalization, Other)
  Sender: FDA-Public Use
  Company Number: US-ALEXION PHARMACEUTICALS INC.-A201402422

PATIENT

DRUGS (1)
  1. SOLIRIS [Suspect]
     Active Substance: ECULIZUMAB
     Indication: HAEMOLYTIC URAEMIC SYNDROME
     Dosage: 900 MG, QW
     Route: 042
     Dates: start: 2011

REACTIONS (20)
  - Kidney small [Not Recovered/Not Resolved]
  - Pyrexia [Unknown]
  - Gastrooesophageal reflux disease [Unknown]
  - Fatigue [Unknown]
  - Haematoma [Not Recovered/Not Resolved]
  - Liver injury [Unknown]
  - Blood pressure decreased [Unknown]
  - Pulmonary thrombosis [Unknown]
  - Ejection fraction abnormal [Recovering/Resolving]
  - Cerebrovascular accident [Unknown]
  - Kidney infection [Unknown]
  - Dialysis [Unknown]
  - Activities of daily living impaired [Unknown]
  - Death [Fatal]
  - Lung lobectomy [Unknown]
  - Heart injury [Unknown]
  - Neuralgia [Unknown]
  - Pneumothorax [Unknown]
  - Quality of life decreased [Unknown]
  - Urine output decreased [Unknown]

NARRATIVE: CASE EVENT DATE: 20140607
